FAERS Safety Report 8313958-5 (Version None)
Quarter: 2012Q2

REPORT INFORMATION
  Report Type: 
  Country: None (occurrence: None)
  Receive Date: 20120426
  Receipt Date: 20120418
  Transmission Date: 20120825
  Serious: Yes (Other)
  Sender: FDA-Public Use
  Company Number: JP-JNJFOC-20120314467

PATIENT
  Age: 87 Year
  Sex: Male

DRUGS (6)
  1. ASPIRIN [Concomitant]
     Route: 048
  2. GOSHA-JINKI-GAN [Concomitant]
     Route: 048
  3. AN UNKNOWN MEDICATION [Concomitant]
     Route: 048
  4. MOTILIUM [Concomitant]
     Route: 048
     Dates: start: 20120312
  5. GOREISAN [Concomitant]
     Route: 048
  6. TRAMADOL HYDROCHLORIDE AND ACETAMINOPHEN [Suspect]
     Indication: PAIN
     Dosage: 4 DOSES X 1 PER 1 DAY
     Route: 048
     Dates: start: 20120312, end: 20120326

REACTIONS (3)
  - DEMENTIA [None]
  - INADEQUATE ANALGESIA [None]
  - SOMNOLENCE [None]
